FAERS Safety Report 6251439-3 (Version None)
Quarter: 2009Q2

REPORT INFORMATION
  Report Type: 
  Country: None (occurrence: None)
  Receive Date: 20090630
  Receipt Date: 20090625
  Transmission Date: 20091009
  Serious: No
  Sender: FDA-Public Use
  Company Number: US-B.I. PHARMACEUTICALS,INC./RIDGEFIELD-2007-BP-21019BP

PATIENT
  Age: 61 Year
  Sex: Female
  Weight: 52 kg

DRUGS (10)
  1. SPIRIVA [Suspect]
     Indication: CHRONIC OBSTRUCTIVE PULMONARY DISEASE
     Dosage: 18 MCG
     Route: 055
     Dates: start: 20060801
  2. SPIRIVA [Suspect]
     Indication: DYSPNOEA
     Dosage: 18 MCG
     Route: 055
     Dates: start: 20080801, end: 20081028
  3. SPIRIVA [Suspect]
     Dosage: 18 MCG
     Dates: start: 20081104
  4. ADVAIR HFA [Suspect]
     Indication: CHRONIC OBSTRUCTIVE PULMONARY DISEASE
  5. RANITIDINE [Concomitant]
     Indication: HIATUS HERNIA
  6. DIOVAN [Concomitant]
     Indication: HYPERTENSION
     Dosage: 160 MG
  7. LORAZEPAM [Concomitant]
     Indication: ANXIETY
  8. LOVAZA [Concomitant]
     Indication: MEDICAL DIET
  9. FORTICAL [Concomitant]
     Indication: OSTEOPOROSIS
     Route: 045
  10. ALBUTEROL [Concomitant]
     Indication: CHRONIC OBSTRUCTIVE PULMONARY DISEASE
     Route: 055

REACTIONS (4)
  - DYSPNOEA [None]
  - POLLAKIURIA [None]
  - RESIDUAL URINE [None]
  - URINARY TRACT INFECTION [None]
